FAERS Safety Report 10240267 (Version 1)
Quarter: 2014Q2

REPORT INFORMATION
  Report Type: Report from Study
  Country: IN (occurrence: IN)
  Receive Date: 20140617
  Receipt Date: 20140617
  Transmission Date: 20141212
  Serious: Yes (Hospitalization, Other)
  Sender: FDA-Public Use
  Company Number: PHHY2014IN072844

PATIENT
  Age: 55 Year
  Sex: Female

DRUGS (6)
  1. ACLASTA [Suspect]
     Indication: OSTEOPOROSIS
     Dosage: 5 MG,/100ML PER YEAR
     Route: 042
  2. ACLASTA [Suspect]
     Dosage: 5 MG/100ML, PER YEAR
     Route: 042
  3. ACLASTA [Suspect]
     Dosage: 5 MG/100ML, PER YEAR
     Route: 042
     Dates: start: 20130517
  4. CORCAL [Concomitant]
     Indication: JOINT INJURY
     Dosage: UNK UKN, UNK
     Route: 048
  5. INSULIN [Concomitant]
     Indication: DIABETES MELLITUS
     Dosage: UNK UKN, TID
     Route: 042
  6. EMTEC [Concomitant]
     Indication: HYPERTENSION
     Dosage: UNK UKN, QD
     Route: 048

REACTIONS (6)
  - Cardiac disorder [Not Recovered/Not Resolved]
  - Bone disorder [Not Recovered/Not Resolved]
  - Overweight [Not Recovered/Not Resolved]
  - Dyspnoea [Not Recovered/Not Resolved]
  - Fracture [Unknown]
  - Gait disturbance [Unknown]
